FAERS Safety Report 7298794-3 (Version None)
Quarter: 2011Q1

REPORT INFORMATION
  Report Type: 
  Country: None (occurrence: None)
  Receive Date: 20110217
  Receipt Date: 20110214
  Transmission Date: 20110831
  Serious: Yes (Other)
  Sender: FDA-Public Use
  Company Number: NO-PFIZER INC-2011032068

PATIENT
  Sex: Female

DRUGS (3)
  1. EPIRUBICIN HYDROCHLORIDE [Suspect]
  2. EXEMESTANE [Suspect]
     Dosage: UNK
  3. EVEROLIMUS [Suspect]

REACTIONS (5)
  - DYSPNOEA [None]
  - DEHYDRATION [None]
  - VOMITING [None]
  - PAIN [None]
  - SYNCOPE [None]
